FAERS Safety Report 24591167 (Version 1)
Quarter: 2024Q4

REPORT INFORMATION
  Report Type: Report from Study
  Country: CA (occurrence: CA)
  Receive Date: 20241108
  Receipt Date: 20241108
  Transmission Date: 20250114
  Serious: Yes (Other)
  Sender: AMGEN
  Company Number: CA-002147023-NVSC2024CA121739

PATIENT
  Sex: Female

DRUGS (1)
  1. AIMOVIG [Suspect]
     Active Substance: ERENUMAB-AOOE
     Indication: Migraine
     Dosage: UNK
     Route: 065
     Dates: start: 20240510

REACTIONS (3)
  - Systemic lupus erythematosus [Unknown]
  - Joint stiffness [Unknown]
  - Blister [Recovered/Resolved]

NARRATIVE: CASE EVENT DATE: 20240601
